FAERS Safety Report 8594777-1 (Version None)
Quarter: 2012Q2

REPORT INFORMATION
  Report Type: 
  Country: None (occurrence: None)
  Receive Date: 20120423
  Receipt Date: 20100104
  Transmission Date: 20120825
  Serious: Yes (Hospitalization)
  Sender: FDA-Public Use
  Company Number: PHEH2009US18402

PATIENT
  Age: 14 Year
  Sex: Female

DRUGS (2)
  1. EXJADE [Suspect]
     Indication: IRON OVERLOAD
     Dosage: 1000 MG DAILY, ORAL
     Route: 048
     Dates: start: 20091212, end: 20091225
  2. EXJADE [Suspect]
     Indication: COMPLICATIONS OF BONE MARROW TRANSPLANT
     Dosage: 1000 MG DAILY, ORAL
     Route: 048
     Dates: start: 20091212, end: 20091225

REACTIONS (4)
  - LIVER DISORDER [None]
  - URINE COLOUR ABNORMAL [None]
  - NAUSEA [None]
  - ABDOMINAL PAIN UPPER [None]
